FAERS Safety Report 8979790 (Version 1)
Quarter: 2012Q4

REPORT INFORMATION
  Report Type: 
  Country: US (occurrence: US)
  Receive Date: 20121221
  Receipt Date: 20121221
  Transmission Date: 20130627
  Serious: Yes (Hospitalization)
  Sender: FDA-Public Use
  Company Number: PHHY2012US112388

PATIENT
  Age: 45 Year
  Sex: Female

DRUGS (9)
  1. CLOZAPINE [Suspect]
     Indication: SCHIZOAFFECTIVE DISORDER
     Dosage: UNK UKN, UNK
  2. CLOZAPINE [Suspect]
     Dosage: UNK
     Dates: start: 20100809
  3. LEVOTHYROXINE [Concomitant]
     Dosage: 25 ug, daily
  4. OLANZAPINE [Concomitant]
     Dosage: 7.5 mg, daily
  5. OXCARBAZEPINE [Concomitant]
     Dosage: 600 mg, daily
  6. SERTRALINE [Concomitant]
     Dosage: 50 mg, daily
  7. QUETIAPINE [Concomitant]
     Dosage: UNK UKN, UNK
  8. VALPROATE [Concomitant]
     Dosage: UNK UKN, UNK
  9. CITALOPRAM [Concomitant]
     Dosage: UNK UKN, UNK

REACTIONS (15)
  - Malignant melanoma [Unknown]
  - Cellulitis [Unknown]
  - Ulcer [Unknown]
  - Gastrooesophageal reflux disease [Not Recovered/Not Resolved]
  - Lymphadenopathy [Unknown]
  - Psychotic disorder [Recovered/Resolved]
  - Hypervigilance [Unknown]
  - Irritability [Unknown]
  - Affective disorder [Recovered/Resolved]
  - Insomnia [Recovered/Resolved]
  - Paranoia [Recovered/Resolved]
  - Granulocytopenia [Recovered/Resolved]
  - White blood cell count decreased [Recovered/Resolved]
  - Neutrophil count decreased [Recovered/Resolved]
  - Leukopenia [Recovered/Resolved]
